FAERS Safety Report 5583620-0 (Version None)
Quarter: 2008Q1

REPORT INFORMATION
  Report Type: 
  Country: None (occurrence: None)
  Receive Date: 20080107
  Receipt Date: 20071228
  Transmission Date: 20080703
  Serious: Yes (Hospitalization)
  Sender: FDA-Public Use
  Company Number: US-ABBOTT-08P-163-0431805-00

PATIENT
  Sex: Male
  Weight: 104.3 kg

DRUGS (2)
  1. HUMIRA [Suspect]
     Indication: PSORIATIC ARTHROPATHY
     Dosage: HELD FOR SURGERY
     Route: 058
     Dates: start: 20071001, end: 20071115
  2. LISINOPRIL [Concomitant]
     Indication: HYPERTENSION
     Route: 048
     Dates: start: 20050101

REACTIONS (2)
  - GROIN ABSCESS [None]
  - LYMPHADENECTOMY [None]
